FAERS Safety Report 19561821 (Version 1)
Quarter: 2021Q3

REPORT INFORMATION
  Report Type: Other
  Country: CA (occurrence: CA)
  Receive Date: 20210715
  Receipt Date: 20210715
  Transmission Date: 20211014
  Serious: Yes (Life-Threatening, Hospitalization, Other)
  Sender: FDA-Public Use
  Company Number: CA-APOTEX-2021AP017284

PATIENT
  Sex: Male

DRUGS (4)
  1. CLONAZEPAM. [Suspect]
     Active Substance: CLONAZEPAM
     Indication: PRODUCT USED FOR UNKNOWN INDICATION
     Dosage: UNK
     Route: 065
  2. ARIPIPRAZOLE. [Suspect]
     Active Substance: ARIPIPRAZOLE
     Indication: PRODUCT USED FOR UNKNOWN INDICATION
     Dosage: UNK
     Route: 065
  3. ZIPRASIDONE. [Suspect]
     Active Substance: ZIPRASIDONE
     Indication: PRODUCT USED FOR UNKNOWN INDICATION
     Dosage: UNK
     Route: 065
  4. ZUCLOPENTHIXOL ACETATE [Suspect]
     Active Substance: ZUCLOPENTHIXOL ACETATE
     Indication: PARANOIA
     Dosage: UNK
     Route: 030

REACTIONS (11)
  - Catatonia [Recovered/Resolved]
  - Irritability [Recovered/Resolved]
  - Rhabdomyolysis [Recovered/Resolved]
  - Posture abnormal [Recovered/Resolved]
  - Abnormal behaviour [Recovered/Resolved]
  - Neuroleptic malignant syndrome [Recovered/Resolved]
  - Suicidal ideation [Recovered/Resolved]
  - Condition aggravated [Recovered/Resolved]
  - Acute kidney injury [Recovered/Resolved]
  - Delusion [Recovered/Resolved]
  - Anger [Recovered/Resolved]
